APPROVED DRUG PRODUCT: OXCARBAZEPINE
Active Ingredient: OXCARBAZEPINE
Strength: 300MG
Dosage Form/Route: TABLET;ORAL
Application: A078069 | Product #002 | TE Code: AB
Applicant: BRECKENRIDGE PHARMACEUTICAL INC
Approved: Jan 11, 2008 | RLD: No | RS: No | Type: RX